FAERS Safety Report 5387480-2 (Version None)
Quarter: 2007Q3

REPORT INFORMATION
  Report Type: 
  Country: None (occurrence: None)
  Receive Date: 20070716
  Receipt Date: 20070706
  Transmission Date: 20080115
  Serious: Yes (Hospitalization)
  Sender: FDA-Public Use
  Company Number: US-AMGEN-STX233042

PATIENT
  Sex: Male

DRUGS (1)
  1. ENBREL [Suspect]
     Indication: RHEUMATOID ARTHRITIS
     Route: 058
     Dates: start: 20010101

REACTIONS (5)
  - DIARRHOEA [None]
  - GASTROENTERITIS VIRAL [None]
  - INJECTION SITE BRUISING [None]
  - PNEUMONIA [None]
  - VOMITING [None]
